FAERS Safety Report 22305466 (Version 2)
Quarter: 2023Q2

REPORT INFORMATION
  Report Type: Spontaneous
  Country: US (occurrence: US)
  Receive Date: 20230510
  Receipt Date: 20230519
  Transmission Date: 20230721
  Serious: Yes (Other)
  Sender: FDA-Public Use
  Company Number: US-JNJFOC-20230513530

PATIENT
  Age: 62 Year
  Sex: Male

DRUGS (1)
  1. SUDAFED PE PRESSURE PLUS PAIN [Suspect]
     Active Substance: ACETAMINOPHEN\PHENYLEPHRINE HYDROCHLORIDE
     Indication: Paranasal sinus discomfort
     Dosage: 1 CAPLET TWICE A WEEK
     Route: 065
     Dates: start: 202302, end: 2023

REACTIONS (3)
  - Urinary tract obstruction [Recovered/Resolved]
  - Incorrect dose administered [Recovered/Resolved]
  - Inappropriate schedule of product administration [Recovered/Resolved]

NARRATIVE: CASE EVENT DATE: 20230201
